FAERS Safety Report 4578180-7 (Version None)
Quarter: 2005Q1

REPORT INFORMATION
  Report Type: 
  Country: None (occurrence: None)
  Receive Date: 20050209
  Receipt Date: 20050124
  Transmission Date: 20050727
  Serious: Yes (Hospitalization, Other)
  Sender: FDA-Public Use
  Company Number: USA040362597

PATIENT
  Age: 83 Year
  Sex: Female
  Weight: 40 kg

DRUGS (6)
  1. FORTEO [Suspect]
     Indication: OSTEOPOROSIS
     Dosage: 20 UG DAY
     Dates: start: 20040301
  2. SYNTHROID [Concomitant]
  3. MAXZIDE [Concomitant]
  4. CALCIUM GLUCONATE [Concomitant]
  5. VITAMINS NOS [Concomitant]
  6. CELEBREX [Concomitant]

REACTIONS (15)
  - ALOPECIA [None]
  - BLOOD CREATINE PHOSPHOKINASE INCREASED [None]
  - CARDIAC FAILURE CONGESTIVE [None]
  - CEREBRAL ARTERY EMBOLISM [None]
  - CONTUSION [None]
  - CORONARY ARTERY THROMBOSIS [None]
  - ECHOCARDIOGRAM NORMAL [None]
  - FEELING ABNORMAL [None]
  - HYPOTRICHOSIS [None]
  - LOSS OF CONSCIOUSNESS [None]
  - PHARMACEUTICAL PRODUCT COMPLAINT [None]
  - SILENT MYOCARDIAL INFARCTION [None]
  - STENT OCCLUSION [None]
  - TRANSIENT ISCHAEMIC ATTACK [None]
  - VENTRICULAR DYSFUNCTION [None]
